FAERS Safety Report 15196359 (Version 1)
Quarter: 2018Q3

REPORT INFORMATION
  Report Type: Spontaneous
  Country: US (occurrence: US)
  Receive Date: 20180725
  Receipt Date: 20180725
  Transmission Date: 20181010
  Serious: No
  Sender: FDA-Public Use
  Company Number: US-SEBELA IRELAND LIMITED-2017SEB00379

PATIENT
  Sex: Female
  Weight: 58.96 kg

DRUGS (7)
  1. DAILY MULTIVITAMIN [Concomitant]
     Active Substance: VITAMINS
  2. UNSPECIFIED CALCIUM SUPPLEMENT [Concomitant]
  3. HYDROXYZINE [Concomitant]
     Active Substance: HYDROXYZINE HYDROCHLORIDE
     Dosage: 50 MG, 1X/DAY AT BEDTIME
  4. TRANEXAMIC ACID. [Concomitant]
     Active Substance: TRANEXAMIC ACID
     Dosage: 325 MG, 2X/DAY (EVERY 12 HOURS)
  5. ALLEGRA [Concomitant]
     Active Substance: FEXOFENADINE HYDROCHLORIDE
  6. BRISDELLE [Suspect]
     Active Substance: PAROXETINE MESYLATE
     Indication: HOT FLUSH
     Dosage: 7.5 MG, 1X/DAY AT NIGHTTIME
     Route: 048
  7. FLONASE [Concomitant]
     Active Substance: FLUTICASONE PROPIONATE

REACTIONS (4)
  - Drug effect delayed [Recovered/Resolved]
  - Feeling abnormal [Not Recovered/Not Resolved]
  - Asthenia [Not Recovered/Not Resolved]
  - Emotional disorder [Recovering/Resolving]

NARRATIVE: CASE EVENT DATE: 2017
